FAERS Safety Report 6714471-9 (Version None)
Quarter: 2010Q2

REPORT INFORMATION
  Report Type: 
  Country: None (occurrence: None)
  Receive Date: 20100506
  Receipt Date: 20100426
  Transmission Date: 20101027
  Serious: Yes (Hospitalization, Other)
  Sender: FDA-Public Use
  Company Number: PL-WATSON-2010-05748

PATIENT
  Age: 17 Year
  Sex: Female

DRUGS (4)
  1. AMLODIPINE BESYLATE [Suspect]
     Indication: SUICIDE ATTEMPT
     Dosage: 290 MG, SINGLE
     Route: 048
  2. METOPROLOL (WATSON LABORATORIES) [Suspect]
     Indication: SUICIDE ATTEMPT
     Dosage: 500 MG, SINGLE
     Route: 048
  3. VERAPAMIL HCL [Suspect]
     Indication: SUICIDE ATTEMPT
     Dosage: 2400 MG, SINGLE
     Route: 048
  4. IBUPROFEN [Concomitant]
     Indication: SUICIDE ATTEMPT
     Dosage: 4400 MG SINGLE

REACTIONS (9)
  - BRADYCARDIA [None]
  - CARDIOGENIC SHOCK [None]
  - HYPERGLYCAEMIA [None]
  - HYPOTENSION [None]
  - METABOLIC ACIDOSIS [None]
  - NAUSEA [None]
  - OVERDOSE [None]
  - PULMONARY OEDEMA [None]
  - SOMNOLENCE [None]
